FAERS Safety Report 9089696 (Version 1)
Quarter: 2013Q1

REPORT INFORMATION
  Report Type: Spontaneous
  Country: US (occurrence: US)
  Receive Date: 20130130
  Receipt Date: 20130130
  Transmission Date: 20140127
  Serious: No
  Sender: FDA-Public Use
  Company Number: US-ABBOTT-12P-163-0954086-00

PATIENT
  Sex: 0

DRUGS (1)
  1. HUMIRA 40 MG/ 0.8 ML PRE-FILLED SYRINGE [Suspect]
     Indication: PRODUCT USED FOR UNKNOWN INDICATION

REACTIONS (6)
  - Psoriatic arthropathy [Unknown]
  - Episcleritis [Unknown]
  - Ulcerative keratitis [Unknown]
  - Unevaluable event [Unknown]
  - Muscle spasms [Unknown]
  - Dermatitis allergic [Unknown]
